FAERS Safety Report 6505007-6 (Version None)
Quarter: 2009Q4

REPORT INFORMATION
  Report Type: 
  Country: None (occurrence: None)
  Receive Date: 20091218
  Receipt Date: 20091208
  Transmission Date: 20100525
  Serious: Yes (Other)
  Sender: FDA-Public Use
  Company Number: HR-JNJFOC-20091204504

PATIENT
  Age: 17 Month
  Sex: Female

DRUGS (2)
  1. PARACETAMOL [Suspect]
  2. PARACETAMOL [Suspect]
     Indication: DRUG USE FOR UNKNOWN INDICATION

REACTIONS (1)
  - DRUG TOXICITY [None]
